FAERS Safety Report 23711801 (Version 2)
Quarter: 2024Q2

REPORT INFORMATION
  Report Type: Spontaneous
  Country: US (occurrence: US)
  Receive Date: 20240405
  Receipt Date: 20240521
  Transmission Date: 20240717
  Serious: No
  Sender: FDA-Public Use
  Company Number: US-APOTEX-2024AP004048

PATIENT
  Sex: Female

DRUGS (2)
  1. VILAZODONE HYDROCHLORIDE [Suspect]
     Active Substance: VILAZODONE HYDROCHLORIDE
     Indication: Product used for unknown indication
     Dosage: USED FROM PAST 2-3 YEARS
     Route: 065
  2. VILAZODONE HYDROCHLORIDE [Suspect]
     Active Substance: VILAZODONE HYDROCHLORIDE
     Dosage: 1 DOSAGE FORM, QD (2 PILLS TILL NOW (1 YESTERDAY AND 1 TODAY)
     Route: 065
     Dates: start: 20240324

REACTIONS (1)
  - Drug ineffective [Unknown]

NARRATIVE: CASE EVENT DATE: 20240324
